FAERS Safety Report 25767751 (Version 1)
Quarter: 2025Q3

REPORT INFORMATION
  Report Type: Spontaneous
  Country: US (occurrence: None)
  Receive Date: 20250905
  Receipt Date: 20250905
  Transmission Date: 20251020
  Serious: Yes (Hospitalization)
  Sender: FDA-CTU
  Company Number: None

PATIENT
  Age: 65 Year
  Sex: Male
  Weight: 119.25 kg

DRUGS (18)
  1. MONTELUKAST [Suspect]
     Active Substance: MONTELUKAST
     Indication: Hypersensitivity
     Dosage: OTHER QUANTITY : 30 TABLET(S);?FREQUENCY : AT BEDTIME;?
     Route: 048
     Dates: start: 20250718, end: 20250718
  2. HYDROCODONE [Concomitant]
     Active Substance: HYDROCODONE
  3. MORPHINE [Concomitant]
     Active Substance: MORPHINE
  4. METFORMIN [Concomitant]
     Active Substance: METFORMIN HYDROCHLORIDE
  5. PANTOPRAZOLE [Concomitant]
     Active Substance: PANTOPRAZOLE
  6. losartain [Concomitant]
  7. MIRABEGRON [Concomitant]
     Active Substance: MIRABEGRON
  8. REPATHA [Concomitant]
     Active Substance: EVOLOCUMAB
  9. PITAVASTATIN [Concomitant]
     Active Substance: PITAVASTATIN
  10. TESTOSTERONE [Concomitant]
     Active Substance: TESTOSTERONE
  11. LINZESS [Concomitant]
     Active Substance: LINACLOTIDE
  12. vitamins b12 [Concomitant]
  13. PYRIDOXINE HYDROCHLORIDE [Concomitant]
     Active Substance: PYRIDOXINE HYDROCHLORIDE
  14. VITAMIN B1 [Concomitant]
     Active Substance: THIAMINE HYDROCHLORIDE
  15. c [Concomitant]
  16. d [Concomitant]
  17. FISH OIL [Concomitant]
     Active Substance: FISH OIL
  18. ASPIRIN [Concomitant]
     Active Substance: ASPIRIN

REACTIONS (3)
  - Urticaria [None]
  - Erythema [None]
  - Dyspnoea [None]

NARRATIVE: CASE EVENT DATE: 20250718
